FAERS Safety Report 6627656-7 (Version None)
Quarter: 2010Q1

REPORT INFORMATION
  Report Type: 
  Country: None (occurrence: None)
  Receive Date: 20100308
  Receipt Date: 20100222
  Transmission Date: 20100710
  Serious: Yes (Hospitalization)
  Sender: FDA-Public Use
  Company Number: 008816

PATIENT
  Age: 59 Year
  Sex: Female
  Weight: 63 kg

DRUGS (11)
  1. PLETAL [Suspect]
     Indication: CEREBRAL INFARCTION
     Dosage: 200 MG, DAILY DOSE, ORAL
     Route: 048
     Dates: start: 20090101
  2. MICARDIS [Suspect]
     Dosage: 40 MG, QAM, ORAL
     Route: 048
  3. AMLODIN (AMLODIPINE BESILATE) TABLET [Concomitant]
  4. ALSETIN (PRAVASTATIN SODIUM) TABLET [Concomitant]
  5. GASPORT (FAMOTIDINE) TABLET [Concomitant]
  6. ONON (PRANLUKAST) CAPSULE [Concomitant]
  7. MUCODYNE (CARBOCISTEINE) TABLET [Concomitant]
  8. FLUTIDE DISKUS (FLUTICASONE PROPIONATE) [Concomitant]
  9. PROCATEROL HCL [Concomitant]
  10. INTAL [Concomitant]
  11. MAOTO (HERBAL EXTRACTS NOS) [Concomitant]

REACTIONS (4)
  - ASTHMA [None]
  - EOSINOPHILIC PNEUMONIA [None]
  - RESPIRATORY DISTRESS [None]
  - VASCULITIS [None]
